FAERS Safety Report 19378026 (Version 1)
Quarter: 2021Q2

REPORT INFORMATION
  Report Type: Spontaneous
  Country: TW (occurrence: TW)
  Receive Date: 20210604
  Receipt Date: 20210604
  Transmission Date: 20210717
  Serious: Yes (Hospitalization, Other)
  Sender: FDA-Public Use
  Company Number: TW-VALIDUS PHARMACEUTICALS LLC-TW-2021VAL001227

PATIENT

DRUGS (2)
  1. FUROSEMIDE. [Suspect]
     Active Substance: FUROSEMIDE
     Indication: DIURETIC THERAPY
     Dosage: 120 MG, QD
     Route: 065
  2. CARBIMAZOLE [Concomitant]
     Active Substance: CARBIMAZOLE
     Indication: PRODUCT USED FOR UNKNOWN INDICATION
     Dosage: UNK

REACTIONS (10)
  - Hypokalaemia [Recovered/Resolved]
  - Familial periodic paralysis [Recovered/Resolved]
  - Atrioventricular block first degree [Unknown]
  - Drug abuse [Recovered/Resolved]
  - Hypochloraemia [Unknown]
  - Metabolic alkalosis [Unknown]
  - Monoplegia [Recovered/Resolved]
  - Electrocardiogram U-wave prominent [Unknown]
  - Areflexia [Recovered/Resolved]
  - Thyrotoxic periodic paralysis [Recovered/Resolved]
